FAERS Safety Report 7491463-6 (Version None)
Quarter: 2011Q2

REPORT INFORMATION
  Report Type: 
  Country: None (occurrence: None)
  Receive Date: 20110519
  Receipt Date: 20110510
  Transmission Date: 20111010
  Serious: Yes (Other)
  Sender: FDA-Public Use
  Company Number: PHHY2011ES40427

PATIENT
  Age: 66 Year
  Sex: Female

DRUGS (7)
  1. FAMVIR [Suspect]
     Indication: VIITH NERVE PARALYSIS
     Dosage: 750 MG, QD
     Route: 048
     Dates: start: 20110119, end: 20110208
  2. OMEPRAZOLE [Concomitant]
     Dosage: UNK
  3. INDAPAMIDE [Concomitant]
     Dosage: UNK
  4. LOSARTAN POTASSIUM [Concomitant]
     Dosage: UNK
  5. SIMVASTATIN [Concomitant]
     Dosage: UNK
  6. DACORTIN [Concomitant]
     Dosage: UNK
  7. ACETAMINOPHEN [Concomitant]
     Dosage: UNK

REACTIONS (1)
  - HEPATITIS [None]
